FAERS Safety Report 7878592-X (Version None)
Quarter: 2011Q4

REPORT INFORMATION
  Report Type: 
  Country: None (occurrence: None)
  Receive Date: 20111101
  Receipt Date: 20111101
  Transmission Date: 20120403
  Serious: No
  Sender: FDA-Public Use
  Company Number: None

PATIENT
  Age: 29 Year
  Sex: Male
  Weight: 140.61 kg

DRUGS (1)
  1. CREST PRO-HEALTH [Suspect]
     Dosage: 20 ML

REACTIONS (1)
  - TOOTH DISCOLOURATION [None]
